FAERS Safety Report 4551439-5 (Version None)
Quarter: 2005Q1

REPORT INFORMATION
  Report Type: 
  Country: None (occurrence: None)
  Receive Date: 20050107
  Receipt Date: 20041223
  Transmission Date: 20050727
  Serious: Yes (Other)
  Sender: FDA-Public Use
  Company Number: EM2004-0590

PATIENT
  Age: 54 Year
  Sex: Female

DRUGS (4)
  1. TOBI [Suspect]
     Indication: PSEUDOMONAS INFECTION
     Dosage: 300 MG, BID, INHALATION
     Route: 055
  2. SALBUTAMOL (SALBUTAMOL) [Concomitant]
  3. FLIXOTIDE EVOHALER (FLUTICASONE PROPIONATE) [Concomitant]
  4. SPIRIVA [Concomitant]

REACTIONS (6)
  - DYSPNOEA [None]
  - INCREASED UPPER AIRWAY SECRETION [None]
  - INSOMNIA [None]
  - LUNG DISORDER [None]
  - NERVOUSNESS [None]
  - POLLAKIURIA [None]
